FAERS Safety Report 8158497-X (Version None)
Quarter: 2012Q1

REPORT INFORMATION
  Report Type: 
  Country: None (occurrence: None)
  Receive Date: 20120223
  Receipt Date: 20120216
  Transmission Date: 20120608
  Serious: No
  Sender: FDA-Public Use
  Company Number: US-PFIZER INC-2012042675

PATIENT
  Sex: Male

DRUGS (1)
  1. SUTENT [Suspect]
     Indication: GASTROINTESTINAL STROMAL TUMOUR
     Dosage: 3 (12.5MG CAPSULES) PER DAY
     Route: 048
     Dates: start: 20120105, end: 20120126

REACTIONS (1)
  - PLATELET COUNT DECREASED [None]
